FAERS Safety Report 6268088-3 (Version None)
Quarter: 2009Q3

REPORT INFORMATION
  Report Type: 
  Country: None (occurrence: None)
  Receive Date: 20090713
  Receipt Date: 20070125
  Transmission Date: 20100115
  Serious: Yes (Life-Threatening, Hospitalization)
  Sender: FDA-Public Use
  Company Number: JP-GUERBET-20070002

PATIENT
  Age: 50 Year
  Sex: Male

DRUGS (3)
  1. HEXABRIX [Suspect]
     Indication: ANGIOGRAM
     Dosage: 25, ML MILLILITRE(S), , , INTRA-ARTERIAL
     Route: 013
     Dates: start: 20070125, end: 20070224
  2. XYLOCAINE [Concomitant]
  3. NITROGLYCERIN [Concomitant]

REACTIONS (5)
  - ARTERIOSPASM CORONARY [None]
  - BRADYCARDIA [None]
  - ERYTHEMA [None]
  - RASH [None]
  - SHOCK [None]
